FAERS Safety Report 8811996 (Version 4)
Quarter: 2013Q3

REPORT INFORMATION
  Report Type: Spontaneous
  Country: NO (occurrence: NO)
  Receive Date: 20120927
  Receipt Date: 20130819
  Transmission Date: 20140515
  Serious: Yes (Hospitalization)
  Sender: FDA-Public Use
  Company Number: NO-PFIZER INC-2012233255

PATIENT
  Age: 64 Year
  Sex: Female

DRUGS (1)
  1. SULFASALAZINE [Suspect]
     Indication: RHEUMATOID ARTHRITIS
     Dosage: 2 G, DAILY
     Route: 065
     Dates: start: 1993, end: 2005

REACTIONS (5)
  - Synovitis [Unknown]
  - Pneumonia [Unknown]
  - Urinary tract infection [Unknown]
  - Necrotising fasciitis streptococcal [Unknown]
  - Osteomyelitis [Unknown]
